FAERS Safety Report 6688771-5 (Version None)
Quarter: 2010Q2

REPORT INFORMATION
  Report Type: 
  Country: None (occurrence: None)
  Receive Date: 20100414
  Receipt Date: 20100407
  Transmission Date: 20101027
  Serious: Yes (Other)
  Sender: FDA-Public Use
  Company Number: 2010SP020246

PATIENT
  Age: 35 Year
  Sex: Male

DRUGS (2)
  1. RIBAVIRIN [Suspect]
     Indication: HEPATITIS C
  2. INTERFERON ALPHA 2A (INTERFERON ALFA-2A) [Suspect]
     Indication: HEPATITIS C

REACTIONS (6)
  - CHOROIDAL DETACHMENT [None]
  - MENINGEAL DISORDER [None]
  - OCULAR VASCULITIS [None]
  - RETINAL DETACHMENT [None]
  - UVEITIS [None]
  - VOGT-KOYANAGI-HARADA SYNDROME [None]
